FAERS Safety Report 10076426 (Version 1)
Quarter: 2014Q2

REPORT INFORMATION
  Report Type: Report from Study
  Country: NL (occurrence: NL)
  Receive Date: 20140414
  Receipt Date: 20140414
  Transmission Date: 20141212
  Serious: Yes (Other)
  Sender: FDA-Public Use
  Company Number: NL-UCBSA-117729

PATIENT
  Sex: Female

DRUGS (4)
  1. LEVETIRACETAM [Suspect]
     Indication: EPILEPSY
     Dosage: DAILY DOSE: 1000(UNSPECIFIED UNITS) IN THE FIRST TRIMESTER
  2. LEVETIRACETAM [Suspect]
     Indication: EPILEPSY
     Dosage: DOSE CHANGE DURING FIRST TRIMESTER
  3. LAMOTRIGINE [Suspect]
     Indication: EPILEPSY
  4. LAMOTRIGINE [Suspect]
     Indication: EPILEPSY
     Dosage: DOSE CHANGE DURING FIRST TRIMESTER

REACTIONS (2)
  - Abortion spontaneous [Unknown]
  - Pregnancy [Recovered/Resolved]
